FAERS Safety Report 10688864 (Version 1)
Quarter: 2015Q1

REPORT INFORMATION
  Report Type: Report from Study
  Country: CN (occurrence: CN)
  Receive Date: 20150103
  Receipt Date: 20150103
  Transmission Date: 20150720
  Serious: Yes (Hospitalization)
  Sender: FDA-Public Use
  Company Number: CN-BRISTOL-MYERS SQUIBB COMPANY-BMS-2014-004794

PATIENT
  Age: 73 Year
  Sex: Male

DRUGS (2)
  1. EXENATIDE [Suspect]
     Active Substance: EXENATIDE
     Dosage: 10 ?G, BID
     Route: 058
  2. EXENATIDE [Suspect]
     Active Substance: EXENATIDE
     Indication: DIABETES MELLITUS
     Dosage: 5 ?G, BID
     Route: 058
     Dates: start: 201408

REACTIONS (1)
  - Cerebral haemorrhage [Unknown]

NARRATIVE: CASE EVENT DATE: 2014
